FAERS Safety Report 6506347-7 (Version None)
Quarter: 2009Q4

REPORT INFORMATION
  Report Type: 
  Country: None (occurrence: None)
  Receive Date: 20091218
  Receipt Date: 20091207
  Transmission Date: 20100525
  Serious: Yes (Other)
  Sender: FDA-Public Use
  Company Number: US-BAYER-200920133NA

PATIENT
  Age: 41 Year
  Sex: Female
  Weight: 54 kg

DRUGS (11)
  1. MAGNEVIST [Suspect]
     Indication: ANGIOGRAM
     Dosage: TOTAL DAILY DOSE: 40 ML
     Dates: start: 20010719, end: 20010719
  2. MAGNEVIST [Suspect]
     Dosage: TOTAL DAILY DOSE: 40 ML
     Dates: start: 20020320, end: 20020320
  3. MAGNEVIST [Suspect]
     Dosage: TOTAL DAILY DOSE: 30 ML
     Dates: start: 20020729, end: 20020729
  4. OMNISCAN [Suspect]
     Indication: NUCLEAR MAGNETIC RESONANCE IMAGING
  5. OPTIMARK [Suspect]
     Indication: NUCLEAR MAGNETIC RESONANCE IMAGING
  6. MULTIHANCE [Suspect]
     Indication: IMAGING PROCEDURE
  7. PROHANCE [Suspect]
     Indication: NUCLEAR MAGNETIC RESONANCE IMAGING ABDOMINAL
     Dosage: TOTAL DAILY DOSE: 15 ML
     Route: 042
     Dates: start: 20020827, end: 20020827
  8. PROHANCE [Suspect]
     Dosage: TOTAL DAILY DOSE: 15 ML
     Route: 042
     Dates: start: 20020930, end: 20020930
  9. NEPHROCAPS [Concomitant]
  10. EPOGEN [Concomitant]
  11. RENAGEL [Concomitant]

REACTIONS (14)
  - ANXIETY [None]
  - ARTHRALGIA [None]
  - BURNING SENSATION [None]
  - EMOTIONAL DISTRESS [None]
  - JOINT STIFFNESS [None]
  - MOBILITY DECREASED [None]
  - NEPHROGENIC SYSTEMIC FIBROSIS [None]
  - PAIN IN EXTREMITY [None]
  - PAIN IN JAW [None]
  - SKIN DISCOLOURATION [None]
  - SKIN FIBROSIS [None]
  - SKIN HYPERTROPHY [None]
  - SKIN OEDEMA [None]
  - SKIN TIGHTNESS [None]
